FAERS Safety Report 19441671 (Version 3)
Quarter: 2021Q3

REPORT INFORMATION
  Report Type: Spontaneous
  Country: DK (occurrence: DK)
  Receive Date: 20210621
  Receipt Date: 20210908
  Transmission Date: 20211014
  Serious: Yes (Life-Threatening, Hospitalization)
  Sender: FDA-Public Use
  Company Number: DK-NOVOPROD-821997

PATIENT
  Age: 83 Year
  Sex: Male

DRUGS (24)
  1. NITROLINGUAL [Concomitant]
     Active Substance: NITROGLYCERIN
     Indication: MYOCARDIAL INFARCTION
     Dosage: UNK
     Route: 060
     Dates: start: 20181128
  2. GANGIDEN [Concomitant]
     Indication: CONSTIPATION
     Dosage: UNK
     Route: 065
     Dates: start: 20200304
  3. FARMIDUR [Concomitant]
     Indication: ANGINA PECTORIS
     Dosage: 120 MG, QD
     Route: 065
     Dates: start: 20190413
  4. LAXOBERAL [Concomitant]
     Active Substance: SODIUM PICOSULFATE
     Indication: CONSTIPATION
     Dosage: 10DROPS IN THE MORNING
     Route: 065
     Dates: start: 20201002
  5. COMBAR [Concomitant]
     Active Substance: MIRTAZAPINE
     Indication: SEDATIVE THERAPY
     Dosage: 15 MG, QD
     Route: 065
     Dates: start: 20201005
  6. FORXIGA [Concomitant]
     Active Substance: DAPAGLIFLOZIN
     Indication: TYPE 2 DIABETES MELLITUS
     Dosage: 10 MG, QD
     Route: 065
     Dates: start: 20210222
  7. NASONEX [Concomitant]
     Active Substance: MOMETASONE FUROATE
     Indication: RHINORRHOEA
     Dosage: UNK(2 PUFFS 2 TIMES A DAY)
     Route: 065
     Dates: start: 20210330
  8. MICROLAX [SODIUM CITRATE;SODIUM LAURYL SULFOACETATE] [Concomitant]
     Indication: CONSTIPATION
     Dosage: UNK
     Dates: start: 20200304
  9. PANODIL [Concomitant]
     Active Substance: ACETAMINOPHEN
     Indication: PAIN
     Dosage: UNK(AS NEEDED)
     Route: 065
     Dates: start: 20140927
  10. NOVORAPID [Suspect]
     Active Substance: INSULIN ASPART
     Indication: TYPE 2 DIABETES MELLITUS
     Dosage: UNK (ACCORDING TO WHAT THE PATIENT WILL EAT)
     Route: 058
  11. TRESIBA [Suspect]
     Active Substance: INSULIN DEGLUDEC
     Indication: TYPE 2 DIABETES MELLITUS
     Dosage: 70 IU, QD
     Route: 065
     Dates: start: 20201002
  12. VENLAFAXIN [Concomitant]
     Active Substance: VENLAFAXINE HYDROCHLORIDE
     Dosage: 37.5 MG, QD
     Route: 065
     Dates: start: 20201218
  13. ELIQUIS [Concomitant]
     Active Substance: APIXABAN
     Indication: THROMBOSIS
     Dosage: 2.5 MG, BID
     Route: 065
     Dates: start: 20201002
  14. DIURAL [ACETAZOLAMIDE] [Concomitant]
     Indication: DIURETIC THERAPY
     Dosage: 40 MG, BID
     Route: 065
     Dates: start: 20190515
  15. MAGNESIA [MAGNESIUM OXIDE] [Concomitant]
     Indication: CONSTIPATION
     Dosage: 1500 MG, QD
     Route: 065
     Dates: start: 20141125
  16. KALEORID [Concomitant]
     Active Substance: POTASSIUM CHLORIDE
     Indication: MINERAL SUPPLEMENTATION
     Dosage: UNK (750 MG 4 TABLETS)
     Route: 065
     Dates: start: 20190304
  17. VENLAFAXIN [Concomitant]
     Active Substance: VENLAFAXINE HYDROCHLORIDE
     Dosage: 37.5 MG, QD
     Route: 065
     Dates: start: 20201218
  18. CELLUVISC MD [Concomitant]
     Active Substance: CARBOXYMETHYLCELLULOSE SODIUM
     Indication: EYE DISORDER
     Dosage: UNK(AS NEEDED)
     Route: 065
     Dates: start: 20170613
  19. OXAPAX [Concomitant]
     Active Substance: OXAZEPAM
     Indication: ANXIETY
     Dosage: 15 MG
     Dates: start: 20200109
  20. VENLAFAXIN [Concomitant]
     Active Substance: VENLAFAXINE HYDROCHLORIDE
     Indication: DEPRESSION
     Dosage: 75 MG, QD
     Route: 065
     Dates: start: 20201001
  21. LANSOPRAZOL [Concomitant]
     Active Substance: LANSOPRAZOLE
     Indication: GASTRIC ULCER
     Dosage: 15 MG, BID
     Route: 065
     Dates: start: 20201002
  22. UNIKALK FORTE [Concomitant]
     Indication: VITAMIN SUPPLEMENTATION
     Dosage: UNK(TABLET A DAY WITH A MEAL)
     Route: 065
     Dates: start: 20210519
  23. LYRICA [Concomitant]
     Active Substance: PREGABALIN
     Indication: PAIN
     Dosage: 75 MG, TID
     Route: 065
     Dates: start: 20201030
  24. MORFIN [MORPHINE] [Concomitant]
     Active Substance: MORPHINE
     Indication: ANGINA PECTORIS
     Dosage: UNK
     Route: 065
     Dates: start: 20200622

REACTIONS (4)
  - Unevaluable event [Recovered/Resolved]
  - Product appearance confusion [Recovered/Resolved]
  - Accidental overdose [Recovered/Resolved]
  - Wrong product administered [Recovered/Resolved]
